FAERS Safety Report 15395727 (Version 1)
Quarter: 2018Q3

REPORT INFORMATION
  Report Type: Spontaneous
  Country: US (occurrence: US)
  Receive Date: 20180912
  Receipt Date: 20180912
  Transmission Date: 20181010
  Serious: Yes (Hospitalization)
  Sender: FDA-Public Use
  Company Number: None

PATIENT
  Age: 55 Year
  Sex: Male

DRUGS (13)
  1. AMLODIPINE [Concomitant]
     Active Substance: AMLODIPINE BESYLATE
  2. TRAMADOL. [Concomitant]
     Active Substance: TRAMADOL
  3. DOXAZOSIN [Concomitant]
     Active Substance: DOXAZOSIN\DOXAZOSIN MESYLATE
  4. HYDROCO/APAP [Concomitant]
     Active Substance: ACETAMINOPHEN\HYDROCODONE
  5. SENSIPAR [Suspect]
     Active Substance: CINACALCET HYDROCHLORIDE
     Indication: PRODUCT USED FOR UNKNOWN INDICATION
     Route: 048
  6. METOPROLOL. [Concomitant]
     Active Substance: METOPROLOL
  7. SEVELAMER [Concomitant]
     Active Substance: SEVELAMER
  8. SIMVASTATIN. [Concomitant]
     Active Substance: SIMVASTATIN
  9. GABAPENTIN. [Concomitant]
     Active Substance: GABAPENTIN
  10. LISINOPRIL. [Concomitant]
     Active Substance: LISINOPRIL
  11. LANTUS [Concomitant]
     Active Substance: INSULIN GLARGINE
  12. OXYCODONE [Concomitant]
     Active Substance: OXYCODONE
  13. PREDNISONE. [Concomitant]
     Active Substance: PREDNISONE

REACTIONS (2)
  - Toe amputation [None]
  - Infection [None]

NARRATIVE: CASE EVENT DATE: 20180910
